FAERS Safety Report 10202973 (Version 1)
Quarter: 2014Q2

REPORT INFORMATION
  Report Type: Spontaneous
  Country: DK (occurrence: DK)
  Receive Date: 20140528
  Receipt Date: 20140528
  Transmission Date: 20141212
  Serious: Yes (Hospitalization)
  Sender: FDA-Public Use
  Company Number: PHHY2014DK062222

PATIENT
  Age: 74 Year
  Sex: Female
  Weight: 41 kg

DRUGS (6)
  1. ZOMETA [Suspect]
     Indication: OSTEOPOROSIS
     Dosage: 5 MG, (SINGLE DOSE)
     Route: 042
     Dates: start: 20140116
  2. COZAAR [Concomitant]
     Dosage: UNK UKN, UNK
  3. SELOZOK [Concomitant]
     Dosage: UNK UKN, UNK
  4. CENTYL [Concomitant]
     Dosage: UNK UKN, UNK
  5. HJERTEMAGNYL                       /00228701/ [Concomitant]
     Dosage: UNK UKN, UNK
  6. SIMVASTATIN [Concomitant]
     Dosage: UNK UKN, UNK

REACTIONS (7)
  - Renal tubular necrosis [Not Recovered/Not Resolved]
  - Tubulointerstitial nephritis [Not Recovered/Not Resolved]
  - Renal failure [Not Recovered/Not Resolved]
  - Hypocalcaemia [Not Recovered/Not Resolved]
  - Malaise [Unknown]
  - Influenza like illness [Unknown]
  - Vomiting [Unknown]
